FAERS Safety Report 7738042 (Version 16)
Quarter: 2013Q2

REPORT INFORMATION
  Report Type: Spontaneous
  Country: US (occurrence: US)
  Receive Date: 20101223
  Receipt Date: 20130603
  Transmission Date: 20140414
  Serious: Yes (Hospitalization, Disabling, Other)
  Sender: FDA-Public Use
  Company Number: US-009507513-1012USA02523

PATIENT
  Sex: Female
  Weight: 78.93 kg

DRUGS (7)
  1. FOSAMAX [Suspect]
     Indication: OSTEOPOROSIS
     Dosage: 70 MG, QW
     Route: 048
     Dates: start: 1995, end: 200904
  2. FOSAMAX [Suspect]
     Indication: OSTEOPENIA
  3. CALCIUM (UNSPECIFIED) (+) VITAMIN D (UNSPECIFIED) [Concomitant]
     Dosage: 600 MG, UNK
  4. MK-9278 [Concomitant]
  5. VITA C [Concomitant]
     Dosage: 500 MG, UNK
  6. FOSAMAX PLUS D [Suspect]
     Indication: OSTEOPENIA
     Dosage: 70 MG, UNK
  7. SYNTHROID [Concomitant]
     Indication: HYPOTHYROIDISM
     Dosage: 50 ?G, QD
     Route: 048

REACTIONS (86)
  - Femur fracture [Recovered/Resolved]
  - Femur fracture [Recovered/Resolved with Sequelae]
  - Open reduction of fracture [Recovered/Resolved]
  - Open reduction of fracture [Unknown]
  - Foot fracture [Unknown]
  - Procedural complication [Unknown]
  - Foot fracture [Recovered/Resolved with Sequelae]
  - Fall [Unknown]
  - Humerus fracture [Unknown]
  - Vein disorder [Unknown]
  - Breast cancer [Unknown]
  - Anaemia postoperative [Unknown]
  - Invasive ductal breast carcinoma [Unknown]
  - Arteriospasm coronary [Unknown]
  - Sinus tachycardia [Unknown]
  - Left ventricular hypertrophy [Unknown]
  - Deep vein thrombosis [Unknown]
  - Arteriospasm coronary [Unknown]
  - Fracture nonunion [Recovered/Resolved with Sequelae]
  - Upper limb fracture [Unknown]
  - Neuropathy peripheral [Not Recovered/Not Resolved]
  - Vitamin D deficiency [Unknown]
  - Calcium deficiency [Unknown]
  - Asthma [Unknown]
  - Fall [Unknown]
  - Spinal osteoarthritis [Not Recovered/Not Resolved]
  - Polyarthritis [Unknown]
  - Breast cyst [Unknown]
  - Rib fracture [Recovered/Resolved]
  - Road traffic accident [Unknown]
  - Low turnover osteopathy [Unknown]
  - Thrombophlebitis superficial [Unknown]
  - Migraine [Unknown]
  - Colitis [Unknown]
  - Hypertension [Not Recovered/Not Resolved]
  - Ovarian cyst [Unknown]
  - Bone marrow disorder [Unknown]
  - Fall [Unknown]
  - Breast cyst [Unknown]
  - Back injury [Unknown]
  - Inappropriate schedule of drug administration [Unknown]
  - Otitis media [Unknown]
  - Sinusitis [Unknown]
  - Hyperlipidaemia [Not Recovered/Not Resolved]
  - Sinusitis [Unknown]
  - Contusion [Unknown]
  - Oral infection [Unknown]
  - Insomnia [Unknown]
  - Cough [Unknown]
  - Osteoarthritis [Unknown]
  - Joint effusion [Unknown]
  - Osteoarthritis [Unknown]
  - Patellofemoral pain syndrome [Unknown]
  - Joint effusion [Unknown]
  - Joint crepitation [Unknown]
  - Exostosis [Unknown]
  - Intraosseous angioma [Unknown]
  - Intervertebral disc protrusion [Unknown]
  - Chest pain [Unknown]
  - Cholelithiasis [Unknown]
  - Blister [Unknown]
  - Syncope [Unknown]
  - Hyperhidrosis [Unknown]
  - Weight increased [Unknown]
  - Drug intolerance [Unknown]
  - Pain [Unknown]
  - Chest pain [Unknown]
  - Neuritis [Unknown]
  - Coronary artery disease [Unknown]
  - Arthropathy [Unknown]
  - Palpitations [Unknown]
  - Anxiety [Unknown]
  - Soft tissue mass [Unknown]
  - Mass excision [Unknown]
  - Meniscus injury [Unknown]
  - Meniscus removal [Unknown]
  - Mitral valve prolapse [Unknown]
  - Diastolic dysfunction [Unknown]
  - Oedema peripheral [Unknown]
  - Hypersensitivity [Unknown]
  - Gastrooesophageal reflux disease [Unknown]
  - Arthralgia [Unknown]
  - Diarrhoea [Unknown]
  - Musculoskeletal chest pain [Unknown]
  - Arthralgia [Unknown]
  - Drug ineffective [Unknown]
